FAERS Safety Report 20770707 (Version 5)
Quarter: 2022Q3

REPORT INFORMATION
  Report Type: Spontaneous
  Country: US (occurrence: US)
  Receive Date: 20220429
  Receipt Date: 20220705
  Transmission Date: 20221027
  Serious: Yes (Other)
  Sender: FDA-Public Use
  Company Number: US-BIOVITRUM-2022US05708

PATIENT
  Sex: Male
  Weight: 15 kg

DRUGS (21)
  1. SYNAGIS [Suspect]
     Active Substance: PALIVIZUMAB
     Indication: Congenital hydrocephalus
     Dates: start: 20211231
  2. SYNAGIS [Suspect]
     Active Substance: PALIVIZUMAB
     Indication: Infantile spasms
     Dosage: 2-1 ML OF 100 MG/ML IN LEFT AND RIGHT THIGH AND 1-0.75 ML OF 50 MG/0.5 ML IN LOWER THIGH
     Dates: start: 20220428
  3. SYNAGIS [Suspect]
     Active Substance: PALIVIZUMAB
     Dates: start: 20220114
  4. SYNAGIS [Suspect]
     Active Substance: PALIVIZUMAB
     Dates: start: 20220211
  5. SYNAGIS [Suspect]
     Active Substance: PALIVIZUMAB
     Dates: start: 20220314
  6. PROPRANOLOL HYDROCHLORIDE [Concomitant]
     Active Substance: PROPRANOLOL HYDROCHLORIDE
     Dosage: 20 MG/5 ML SOLUTION
  7. OMEPRAZOLE [Concomitant]
     Active Substance: OMEPRAZOLE
     Dosage: 20 MG CAPSULE DR
  8. SABRIL [Concomitant]
     Active Substance: VIGABATRIN
     Dosage: 500 MG POWDER PACK
  9. KEPPRA [Concomitant]
     Active Substance: LEVETIRACETAM
     Dosage: 500 MG TABLET
  10. KEPPRA [Concomitant]
     Active Substance: LEVETIRACETAM
     Dosage: 100 MG/ML
  11. MELATONIN [Concomitant]
     Active Substance: MELATONIN
     Dosage: 1 MG/4 ML DROPS
  12. ACTHAR [Concomitant]
     Active Substance: CORTICOTROPIN
  13. PREDNISOLONE [Concomitant]
     Active Substance: PREDNISOLONE
     Dosage: 15 MG/5 ML SOLUTION
  14. TOPIRAMATE [Concomitant]
     Active Substance: TOPIRAMATE
     Dosage: TABLET
  15. SINGULAIR [Concomitant]
     Active Substance: MONTELUKAST SODIUM
     Dosage: 4 MG GRANULES PACKET
  16. CEPHALEXIN [Concomitant]
     Active Substance: CEPHALEXIN
     Dosage: 125 MG/5 ML SUSP RECON
  17. BACTRIM [Concomitant]
     Active Substance: SULFAMETHOXAZOLE\TRIMETHOPRIM
     Dosage: 400MG-80MG TABLET
  18. HYDROCORTISONE ALOE CREAM [Concomitant]
     Dosage: 0.5% CREAM
  19. MILK OF MAGNESIA [Concomitant]
     Active Substance: MAGNESIUM HYDROXIDE
  20. ZYPREXA [Concomitant]
     Active Substance: OLANZAPINE
  21. ZYRTEC [Concomitant]
     Active Substance: CETIRIZINE HYDROCHLORIDE

REACTIONS (10)
  - Meningitis [Recovering/Resolving]
  - Rhinovirus infection [Unknown]
  - Parainfluenzae virus infection [Unknown]
  - Nasopharyngitis [Recovering/Resolving]
  - Illness [Unknown]
  - Thrombocytosis [Unknown]
  - Blood pressure abnormal [Unknown]
  - Blood glucose abnormal [Unknown]
  - Product dose omission issue [Unknown]
  - Off label use [Unknown]
